FAERS Safety Report 8510985 (Version 3)
Quarter: 2012Q4

REPORT INFORMATION
  Report Type: 
  Country: CA (occurrence: CA)
  Receive Date: 20120413
  Receipt Date: 20121109
  Transmission Date: 20130627
  Serious: Yes (Hospitalization, Other)
  Sender: FDA-Public Use
  Company Number: CA-ROCHE-1057884

PATIENT
  Age: 84 Year
  Sex: Male

DRUGS (5)
  1. XOLAIR [Suspect]
     Indication: ASTHMA
     Route: 058
     Dates: start: 20120221
  2. SYMBICORT [Concomitant]
     Route: 065
  3. SINGULAIR [Concomitant]
     Route: 065
  4. FLOVENT [Concomitant]
     Route: 065
  5. PREDNISONE [Concomitant]
     Route: 065

REACTIONS (7)
  - Pneumonia [Unknown]
  - Dyspnoea exertional [Unknown]
  - Productive cough [Unknown]
  - Oedema peripheral [Unknown]
  - Influenza like illness [Unknown]
  - Asthenia [Unknown]
  - Drug ineffective [Unknown]
